FAERS Safety Report 8091275-9 (Version None)
Quarter: 2012Q1

REPORT INFORMATION
  Report Type: 
  Country: None (occurrence: None)
  Receive Date: 20120129
  Receipt Date: 20111024
  Transmission Date: 20120608
  Serious: No
  Sender: FDA-Public Use
  Company Number: US-ABBOTT-11P-163-0868310-00

PATIENT
  Sex: Female

DRUGS (1)
  1. HUMIRA [Suspect]
     Indication: OFF LABEL USE
     Route: 058
     Dates: start: 20110501, end: 20111024

REACTIONS (3)
  - EYE INFLAMMATION [None]
  - OCULAR HYPERAEMIA [None]
  - OFF LABEL USE [None]
